FAERS Safety Report 25604571 (Version 1)
Quarter: 2025Q3

REPORT INFORMATION
  Report Type: Report from Study
  Country: US (occurrence: US)
  Receive Date: 20250725
  Receipt Date: 20250725
  Transmission Date: 20251021
  Serious: Yes (Hospitalization, Other)
  Sender: TAKEDA
  Company Number: US-SHIRE-US201839213AA

PATIENT
  Age: 36 Year
  Sex: Male

DRUGS (4)
  1. ADVATE [Suspect]
     Active Substance: ANTIHEMOPHILIC FACTOR, HUMAN RECOMBINANT
     Indication: Factor VIII deficiency
  2. ADVATE [Suspect]
     Active Substance: ANTIHEMOPHILIC FACTOR, HUMAN RECOMBINANT
  3. ADVATE [Suspect]
     Active Substance: ANTIHEMOPHILIC FACTOR, HUMAN RECOMBINANT
  4. RECOMBINATE [Suspect]
     Active Substance: ANTIHEMOPHILIC FACTOR, HUMAN RECOMBINANT
     Indication: Product used for unknown indication

REACTIONS (3)
  - Haemorrhage [Unknown]
  - Insurance issue [Not Recovered/Not Resolved]
  - Product use issue [Not Recovered/Not Resolved]

NARRATIVE: CASE EVENT DATE: 20180101
